FAERS Safety Report 11321009 (Version 1)
Quarter: 2015Q3

REPORT INFORMATION
  Report Type: Spontaneous
  Country: US (occurrence: US)
  Receive Date: 20150729
  Receipt Date: 20150729
  Transmission Date: 20151125
  Serious: No
  Sender: FDA-Public Use
  Company Number: US-PFIZER INC-2015250082

PATIENT
  Age: 45 Year
  Sex: Female
  Weight: 64 kg

DRUGS (1)
  1. VENLAFAXINE HCL [Suspect]
     Active Substance: VENLAFAXINE HYDROCHLORIDE
     Indication: FIBROMYALGIA
     Dosage: 37.5 MG, 2X/DAY

REACTIONS (2)
  - Weight decreased [Unknown]
  - Decreased appetite [Unknown]
